FAERS Safety Report 15713267 (Version 1)
Quarter: 2018Q4

REPORT INFORMATION
  Report Type: Report from Study
  Country: US (occurrence: US)
  Receive Date: 20181212
  Receipt Date: 20181212
  Transmission Date: 20190205
  Serious: Yes (Other)
  Sender: FDA-Public Use
  Company Number: US-TESARO, INC-US-2018TSO00633

PATIENT
  Sex: Female

DRUGS (5)
  1. ARANESP [Concomitant]
     Active Substance: DARBEPOETIN ALFA
     Indication: PRODUCT USED FOR UNKNOWN INDICATION
  2. WARFARIN [Concomitant]
     Active Substance: WARFARIN
     Indication: PRODUCT USED FOR UNKNOWN INDICATION
  3. PROLIA [Concomitant]
     Active Substance: DENOSUMAB
     Indication: PRODUCT USED FOR UNKNOWN INDICATION
  4. ZEJULA [Suspect]
     Active Substance: NIRAPARIB
     Indication: OVARIAN CANCER
     Dosage: 200 MG, QD
     Route: 048
     Dates: start: 20180129
  5. ZEJULA [Suspect]
     Active Substance: NIRAPARIB
     Dosage: 100 MG, QD
     Route: 048
     Dates: start: 201802

REACTIONS (15)
  - Gait disturbance [Unknown]
  - Fluid intake reduced [Not Recovered/Not Resolved]
  - Blood glucose increased [Unknown]
  - Blood urea increased [Unknown]
  - Intentional underdose [Not Recovered/Not Resolved]
  - Blood creatinine increased [Unknown]
  - Loss of personal independence in daily activities [Not Recovered/Not Resolved]
  - Platelet count decreased [Not Recovered/Not Resolved]
  - Constipation [Not Recovered/Not Resolved]
  - White blood cell count decreased [Unknown]
  - Bronchitis [Unknown]
  - Haemoglobin decreased [Not Recovered/Not Resolved]
  - Emotional distress [Unknown]
  - Vomiting [Not Recovered/Not Resolved]
  - Oedema [Unknown]
